FAERS Safety Report 9225743 (Version 7)
Quarter: 2014Q2

REPORT INFORMATION
  Report Type: Report from Study
  Country: JP (occurrence: JP)
  Receive Date: 20130411
  Receipt Date: 20140616
  Transmission Date: 20141212
  Serious: Yes (Hospitalization)
  Sender: FDA-Public Use
  Company Number: JP-GLAXOSMITHKLINE-B0881200A

PATIENT
  Age: 39 Year
  Sex: Female
  Weight: 49 kg

DRUGS (16)
  1. VOTRIENT 200MG [Suspect]
     Indication: HEPATIC ANGIOSARCOMA
     Dosage: 800MG PER DAY
     Route: 048
     Dates: start: 20130226, end: 20130329
  2. LOXOPROFEN [Suspect]
     Indication: CANCER PAIN
     Dosage: 60MG THREE TIMES PER DAY
     Route: 048
     Dates: start: 20121113, end: 20130329
  3. DECADRON [Suspect]
     Indication: NAUSEA
     Dosage: 1MG TWICE PER DAY
     Route: 048
     Dates: start: 20130308, end: 20130329
  4. PREDONINE [Suspect]
     Indication: INFLAMMATION
     Dosage: 5MG PER DAY
     Route: 048
     Dates: start: 20121113, end: 20130329
  5. GASTER D [Concomitant]
     Indication: PROPHYLAXIS AGAINST GASTROINTESTINAL ULCER
     Dosage: 20MG TWICE PER DAY
     Route: 048
     Dates: start: 20130227, end: 20130329
  6. CALCIUM LACTATE HYDRATE [Concomitant]
     Indication: HYPOCALCAEMIA
     Dosage: 1G PER DAY
     Route: 048
     Dates: start: 20130108, end: 20130329
  7. ROCALTROL [Concomitant]
     Indication: HYPOCALCAEMIA
     Dosage: .25MCG PER DAY
     Route: 048
     Dates: start: 20130115, end: 20130329
  8. LAC-B [Concomitant]
     Dosage: 10MG THREE TIMES PER DAY
     Route: 048
     Dates: start: 20130304, end: 20130329
  9. PROCHLORPERAZINE MALEATE [Concomitant]
     Indication: NAUSEA
     Dosage: 5MG TWICE PER DAY
     Route: 048
     Dates: start: 20130314, end: 20130329
  10. PIARLE [Concomitant]
     Indication: CONSTIPATION
     Dosage: 10ML THREE TIMES PER DAY
     Route: 048
     Dates: start: 20130322, end: 20130329
  11. NASEA-OD [Concomitant]
     Indication: NAUSEA
     Dosage: .1MG PER DAY
     Route: 048
     Dates: start: 20130315, end: 20130329
  12. DUROTEP [Concomitant]
     Indication: CANCER PAIN
     Dosage: 4.2MG PER DAY
     Route: 048
     Dates: start: 20130223
  13. AMLODIPINE [Concomitant]
     Indication: HYPERTENSION
     Dosage: 5MG PER DAY
     Route: 048
     Dates: start: 20130226, end: 20130329
  14. DIOVAN [Concomitant]
     Indication: HYPERTENSION
     Dosage: 40MG PER DAY
     Route: 048
     Dates: start: 20130222, end: 20130329
  15. LUNESTA [Concomitant]
     Indication: INSOMNIA
     Dosage: 1MG PER DAY
     Route: 048
     Dates: start: 20130319, end: 20130329
  16. U-PAN [Concomitant]
     Indication: INSOMNIA
     Dosage: .5MG TWICE PER DAY
     Route: 048
     Dates: start: 20130319, end: 20130329

REACTIONS (6)
  - Disseminated intravascular coagulation [Recovering/Resolving]
  - Gastric ulcer haemorrhage [Not Recovered/Not Resolved]
  - Renal failure acute [Recovered/Resolved]
  - Shock haemorrhagic [Recovered/Resolved]
  - Blood pressure increased [Recovering/Resolving]
  - Nausea [Recovering/Resolving]
